FAERS Safety Report 18101810 (Version 2)
Quarter: 2020Q3

REPORT INFORMATION
  Report Type: Spontaneous
  Country: US (occurrence: US)
  Receive Date: 20200802
  Receipt Date: 20200928
  Transmission Date: 20201103
  Serious: Yes (Other)
  Sender: FDA-Public Use
  Company Number: US-NOVOPROD-743798

PATIENT
  Age: 2 Month
  Sex: Male
  Weight: 9 kg

DRUGS (3)
  1. REBINYN [Suspect]
     Active Substance: COAGULATION FACTOR IX (RECOMBINANT), GLYCOPEGYLATED
     Indication: FACTOR VIII DEFICIENCY
     Dosage: 120 IU/KG
     Route: 065
     Dates: end: 201808
  2. REBINYN [Suspect]
     Active Substance: COAGULATION FACTOR IX (RECOMBINANT), GLYCOPEGYLATED
     Indication: HAEMORRHAGE
  3. REBINYN [Suspect]
     Active Substance: COAGULATION FACTOR IX (RECOMBINANT), GLYCOPEGYLATED
     Indication: FACTOR IX DEFICIENCY
     Dosage: ~100 IU/KG
     Route: 065
     Dates: start: 201802

REACTIONS (4)
  - Anti factor IX antibody increased [Recovered/Resolved]
  - Anaphylactic reaction [Recovered/Resolved]
  - Mouth haemorrhage [Recovered/Resolved]
  - Therapeutic response decreased [Recovered/Resolved]
